FAERS Safety Report 4821802-3 (Version None)
Quarter: 2005Q4

REPORT INFORMATION
  Report Type: 
  Country: None (occurrence: None)
  Receive Date: 20051107
  Receipt Date: 20051101
  Transmission Date: 20060501
  Serious: Yes (Death)
  Sender: FDA-Public Use
  Company Number: KR-SANOFI-SYNTHELABO-A01200507494

PATIENT
  Sex: Male

DRUGS (3)
  1. ELOXATIN [Suspect]
     Indication: COLORECTAL CANCER
     Dosage: UNKNOWN
     Route: 042
     Dates: start: 20050705, end: 20050705
  2. LEUCOVORIN [Concomitant]
     Indication: COLORECTAL CANCER
     Dosage: UNKNOWN
     Dates: start: 20050705
  3. FLUOROURACIL [Concomitant]
     Indication: COLORECTAL CANCER
     Dosage: UNKNOWN

REACTIONS (1)
  - DEATH [None]
